APPROVED DRUG PRODUCT: IONOSOL T AND DEXTROSE 5% IN PLASTIC CONTAINER
Active Ingredient: DEXTROSE; POTASSIUM CHLORIDE; POTASSIUM LACTATE; SODIUM CHLORIDE; SODIUM PHOSPHATE, MONOBASIC ANHYDROUS
Strength: 5GM/100ML;111MG/100ML;256MG/100ML;146MG/100ML;207MG/100ML
Dosage Form/Route: INJECTABLE;INJECTION
Application: N019514 | Product #001
Applicant: HOSPIRA WORLDWIDE, INC
Approved: May 8, 1986 | RLD: No | RS: No | Type: DISCN